FAERS Safety Report 9556400 (Version 1)
Quarter: 2013Q3

REPORT INFORMATION
  Report Type: Spontaneous
  Country: DE (occurrence: None)
  Receive Date: 20130924
  Receipt Date: 20130924
  Transmission Date: 20140515
  Serious: Yes (Other)
  Sender: FDA-Public Use
  Company Number: FK201304339

PATIENT
  Age: 54 Year
  Sex: Female

DRUGS (6)
  1. OXALIPLATIN [Suspect]
     Indication: COLON CANCER
     Dates: start: 20120326, end: 20120327
  2. FLUOROURACIL (FLUOROURACIL) [Concomitant]
  3. LEUCOVORIN (CALCIUM FOLINATE) [Concomitant]
  4. CETUXIMAB (CETUXIMAB) [Concomitant]
  5. IRINOTECAN (IRINOTECAN) [Concomitant]
  6. BEVACIZUMAB (BEVACIZUMAB) [Concomitant]

REACTIONS (10)
  - Multi-organ disorder [None]
  - Renal failure acute [None]
  - Autoimmune haemolytic anaemia [None]
  - Disseminated intravascular coagulation [None]
  - Colorectal cancer metastatic [None]
  - Malignant neoplasm progression [None]
  - Back pain [None]
  - Chills [None]
  - Pyrexia [None]
  - Haemodialysis [None]
